FAERS Safety Report 9056594 (Version 1)
Quarter: 2013Q1

REPORT INFORMATION
  Report Type: Spontaneous
  Country: US (occurrence: US)
  Receive Date: 20130204
  Receipt Date: 20130204
  Transmission Date: 20140127
  Serious: Yes (Other)
  Sender: FDA-Public Use
  Company Number: US-TEVA-384150USA

PATIENT
  Age: 25 Year
  Sex: Male

DRUGS (2)
  1. PROVIGIL [Suspect]
     Dates: start: 20100501, end: 20110501
  2. VERMOX [Suspect]

REACTIONS (4)
  - Coeliac disease [Unknown]
  - Headache [Recovered/Resolved]
  - Urticaria [Recovered/Resolved]
  - Somnolence [Recovered/Resolved]
